FAERS Safety Report 5737011-X (Version None)
Quarter: 2008Q2

REPORT INFORMATION
  Report Type: 
  Country: None (occurrence: None)
  Receive Date: 20080513
  Receipt Date: 20080513
  Transmission Date: 20081010
  Serious: Yes (Hospitalization)
  Sender: FDA-Public Use
  Company Number: None

PATIENT
  Sex: Female

DRUGS (1)
  1. DIGITEX 0.125MG AVANTIS [Suspect]
     Dosage: 1 DAILY PO
     Route: 048
     Dates: start: 20070130, end: 20080509

REACTIONS (3)
  - HEART RATE DECREASED [None]
  - HYPOTENSION [None]
  - THERAPEUTIC AGENT TOXICITY [None]
